FAERS Safety Report 6725702-3 (Version None)
Quarter: 2010Q2

REPORT INFORMATION
  Report Type: 
  Country: None (occurrence: None)
  Receive Date: 20100514
  Receipt Date: 20100506
  Transmission Date: 20101027
  Serious: Yes (Other)
  Sender: FDA-Public Use
  Company Number: JP-GENENTECH-293802

PATIENT
  Age: 76 Year
  Sex: Female

DRUGS (4)
  1. AVASTIN [Suspect]
     Indication: CHOROIDAL NEOVASCULARISATION
     Dosage: 1 MG, UNK
     Route: 031
  2. LIDOCAINE HYDROCHLORIDE [Concomitant]
     Indication: PREMEDICATION
  3. POVIDONE IODINE [Concomitant]
     Indication: PREMEDICATION
  4. LEVOFLOXACIN [Concomitant]
     Indication: DRUG USE FOR UNKNOWN INDICATION

REACTIONS (1)
  - EYE INFLAMMATION [None]
